FAERS Safety Report 5851478-8 (Version None)
Quarter: 2008Q3

REPORT INFORMATION
  Report Type: 
  Country: None (occurrence: None)
  Receive Date: 20080731
  Receipt Date: 20080416
  Transmission Date: 20090109
  Serious: No
  Sender: FDA-Public Use
  Company Number: US200804004595

PATIENT
  Age: 65 Year
  Sex: Female
  Weight: 29.5 kg

DRUGS (2)
  1. BYETTA [Suspect]
     Indication: TYPE 2 DIABETES MELLITUS
     Dosage: 5 UG, 2/D, SUBCUTANEOUS; 10 UG 2/D SUBCUTANEOUS
     Route: 058
     Dates: start: 20060701, end: 20060801
  2. GLUCOPHAGE/USA/METFORMIN HYDROCHLORIDE) [Concomitant]

REACTIONS (3)
  - BLOOD GLUCOSE INCREASED [None]
  - NAUSEA [None]
  - VOMITING [None]
